FAERS Safety Report 4604030-6 (Version None)
Quarter: 2005Q1

REPORT INFORMATION
  Report Type: 
  Country: None (occurrence: None)
  Receive Date: 20050309
  Receipt Date: 20050309
  Transmission Date: 20050727
  Serious: Yes (Hospitalization, Other)
  Sender: FDA-Public Use
  Company Number: None

PATIENT
  Age: 18 Year
  Sex: Male

DRUGS (2)
  1. CORICIDIN (CHLORPHENIRAMINE MALEATE/ACETAMINOPHEN) TABLET [Suspect]
     Indication: INTENTIONAL MISUSE
     Dosage: ORAL
     Route: 048
     Dates: start: 20050125, end: 20050125
  2. DRAMAMINE [Suspect]
     Indication: INTENTIONAL MISUSE
     Dosage: 23 TABLETS
     Dates: start: 20050125, end: 20050125

REACTIONS (2)
  - DEPRESSION [None]
  - INTENTIONAL MISUSE [None]
